FAERS Safety Report 5603148-9 (Version None)
Quarter: 2008Q1

REPORT INFORMATION
  Report Type: 
  Country: None (occurrence: None)
  Receive Date: 20080125
  Receipt Date: 20080115
  Transmission Date: 20080703
  Serious: Yes (Death)
  Sender: FDA-Public Use
  Company Number: DE-PFIZER INC-2008005730

PATIENT
  Sex: Male

DRUGS (48)
  1. COMBACTAM [Suspect]
     Indication: INFECTION PROPHYLAXIS
     Route: 042
     Dates: start: 20040730, end: 20040806
  2. FRAGMIN [Suspect]
     Indication: THROMBOSIS PROPHYLAXIS
     Dosage: DAILY DOSE:2500I.U.
  3. DIFLUCAN [Suspect]
     Indication: FUNGAL INFECTION
     Route: 048
  4. PANTOZOL [Suspect]
     Indication: PROPHYLAXIS AGAINST GASTROINTESTINAL ULCER
     Route: 048
     Dates: start: 20040420, end: 20040721
  5. PANTOZOL [Suspect]
     Route: 048
     Dates: start: 20040724, end: 20040724
  6. ACC LONG [Suspect]
     Indication: RESPIRATORY DISORDER
     Route: 048
     Dates: start: 20040420, end: 20040728
  7. CIPRO [Suspect]
     Indication: INFECTION PROPHYLAXIS
     Dosage: DAILY DOSE:500MG
     Route: 048
     Dates: start: 20040717, end: 20040717
  8. CIPRO [Suspect]
     Dosage: DAILY DOSE:500MG
     Route: 048
     Dates: start: 20040728, end: 20040801
  9. CIPRO [Suspect]
     Dosage: DAILY DOSE:500MG
     Route: 048
     Dates: start: 20040804, end: 20040804
  10. RAMIPRIL [Suspect]
     Indication: HYPERTENSION
     Route: 048
     Dates: start: 20040717, end: 20040717
  11. RAMIPRIL [Suspect]
     Route: 048
  12. NEXIUM [Suspect]
     Indication: PROPHYLAXIS AGAINST GASTROINTESTINAL ULCER
     Route: 048
     Dates: start: 20040717, end: 20040717
  13. NEXIUM [Suspect]
     Route: 048
  14. PROGRAF [Suspect]
     Indication: RESTLESS LEGS SYNDROME
     Route: 048
  15. MERONEM [Suspect]
     Indication: INFECTION PROPHYLAXIS
     Route: 042
     Dates: start: 20040718, end: 20040722
  16. MERONEM [Suspect]
     Route: 042
     Dates: start: 20040803, end: 20040806
  17. ACYCLOVIR [Suspect]
     Indication: ANTIVIRAL PROPHYLAXIS
     Route: 048
     Dates: start: 20040718, end: 20040722
  18. ACYCLOVIR [Suspect]
     Route: 048
     Dates: start: 20040803, end: 20040806
  19. CICLOPIROX OLAMINE [Suspect]
     Route: 061
  20. PREDNISOLONE [Suspect]
     Route: 042
  21. PSORCUTAN [Suspect]
     Indication: PSORIASIS
     Route: 061
  22. PRAMIPEXOLE DIHYDROCHLORIDE [Suspect]
     Indication: EXTRAPYRAMIDAL DISORDER
     Dosage: DAILY DOSE:320MG
     Route: 048
  23. KALINOR [Suspect]
     Indication: HYPOKALAEMIA
     Route: 048
     Dates: start: 20040723, end: 20040724
  24. SOLU-DECORTIN-H [Suspect]
     Indication: PROPHYLAXIS
     Dosage: DAILY DOSE:750MG
     Route: 042
     Dates: start: 20040723, end: 20040726
  25. NOCTAMID [Suspect]
     Indication: SLEEP DISORDER
     Dosage: DAILY DOSE:1MG
     Route: 048
     Dates: start: 20040723, end: 20040723
  26. NOCTAMID [Suspect]
     Dosage: DAILY DOSE:1MG
     Route: 048
     Dates: start: 20040725, end: 20040726
  27. PLACEBO [Suspect]
     Indication: SLEEP DISORDER
     Route: 048
     Dates: start: 20040728, end: 20040728
  28. TRAMADOL HCL [Suspect]
     Indication: PAIN
     Route: 048
     Dates: start: 20040728, end: 20040728
  29. TRAMADOL HCL [Suspect]
     Route: 048
     Dates: start: 20040730, end: 20040801
  30. PIPRIL [Suspect]
     Indication: INFECTION PROPHYLAXIS
     Route: 042
     Dates: start: 20040728, end: 20040806
  31. VANCOMYCIN [Suspect]
     Indication: INFECTION PROPHYLAXIS
     Dosage: DAILY DOSE:1GRAM
     Route: 042
     Dates: start: 20040801, end: 20040801
  32. GLUCOSE [Suspect]
     Route: 042
     Dates: start: 20040801, end: 20040801
  33. METOCLOPRAMIDE [Suspect]
     Indication: NAUSEA
     Dosage: TEXT:45 DROPS
     Route: 048
     Dates: start: 20040801, end: 20040801
  34. ACETYLCYSTEINE [Suspect]
     Route: 042
     Dates: start: 20040801, end: 20040806
  35. SODIUM CHLORIDE INJ [Suspect]
     Indication: FLUID REPLACEMENT
     Route: 042
     Dates: start: 20040801, end: 20040801
  36. SODIUM CHLORIDE INJ [Suspect]
     Route: 042
  37. KONAKION [Suspect]
     Route: 048
     Dates: start: 20040802, end: 20040805
  38. ACETAMINOPHEN [Suspect]
     Indication: PAIN
     Route: 054
     Dates: start: 20040802, end: 20040802
  39. ACETAMINOPHEN [Suspect]
     Route: 054
     Dates: start: 20040804, end: 20040807
  40. KANAVIT [Suspect]
  41. LASIX [Suspect]
     Indication: OEDEMA
     Dosage: DAILY DOSE:40MG
     Route: 048
     Dates: start: 20040803, end: 20040803
  42. FORTRAL [Suspect]
     Indication: ENDOSCOPIC RETROGRADE CHOLANGIOPANCREATOGRAPHY
     Route: 042
     Dates: start: 20040804, end: 20040804
  43. DORMICUM [Suspect]
     Indication: ENDOSCOPIC RETROGRADE CHOLANGIOPANCREATOGRAPHY
     Route: 042
     Dates: start: 20040804, end: 20040804
  44. SAB SIMPLEX [Concomitant]
     Indication: GASTROINTESTINAL DISORDER
     Route: 048
  45. URSO FALK [Concomitant]
     Route: 048
     Dates: start: 20040717, end: 20040718
  46. METOPROLOL TARTRATE [Concomitant]
     Indication: HYPERTENSION
     Route: 048
     Dates: start: 20040720, end: 20040721
  47. ATROPIN [Concomitant]
     Route: 058
     Dates: start: 20040621, end: 20040723
  48. TUTOFUSIN [Concomitant]
     Indication: FLUID REPLACEMENT
     Route: 042

REACTIONS (1)
  - TOXIC EPIDERMAL NECROLYSIS [None]
